FAERS Safety Report 19185306 (Version 4)
Quarter: 2022Q3

REPORT INFORMATION
  Report Type: Spontaneous
  Country: US (occurrence: US)
  Receive Date: 20210427
  Receipt Date: 20220715
  Transmission Date: 20221026
  Serious: Yes (Hospitalization, Other)
  Sender: FDA-Public Use
  Company Number: US-PFIZER INC-2021364245

PATIENT
  Age: 78 Year
  Sex: Female

DRUGS (1)
  1. XELJANZ XR [Suspect]
     Active Substance: TOFACITINIB CITRATE
     Indication: Rheumatoid arthritis
     Dosage: 11 MG, 1X/DAY
     Route: 048
     Dates: start: 2019

REACTIONS (7)
  - Haemoglobin decreased [Unknown]
  - Cardiac failure [Unknown]
  - Disease progression [Unknown]
  - Cardiac valve disease [Unknown]
  - Dyspnoea [Unknown]
  - Product dose omission in error [Unknown]
  - Memory impairment [Unknown]
